FAERS Safety Report 7544198-5 (Version None)
Quarter: 2011Q2

REPORT INFORMATION
  Report Type: 
  Country: None (occurrence: None)
  Receive Date: 20110613
  Receipt Date: 20060810
  Transmission Date: 20111010
  Serious: Yes (Other)
  Sender: FDA-Public Use
  Company Number: PHMT2006CA00549

PATIENT
  Sex: Male

DRUGS (4)
  1. SYNTHROID [Concomitant]
  2. SANDOSTATIN LAR [Suspect]
     Indication: ACROMEGALY
     Dosage: 10 MG EVERY FOUR WEEKS
     Dates: start: 20051220
  3. SANDOSTATIN [Suspect]
     Indication: ACROMEGALY
     Dosage: 100 UG, TID
     Route: 058
  4. SANDOSTATIN LAR [Suspect]
     Dosage: 20MG INTRAGLUTEAL INJECTION EVERY 4 WEEKS

REACTIONS (2)
  - GOITRE [None]
  - THYROID CANCER [None]
